FAERS Safety Report 4897521-4 (Version None)
Quarter: 2006Q1

REPORT INFORMATION
  Report Type: 
  Country: None (occurrence: None)
  Receive Date: 20060130
  Receipt Date: 20060130
  Transmission Date: 20060701
  Serious: Yes (Hospitalization)
  Sender: FDA-Public Use
  Company Number: None

PATIENT
  Age: 49 Year
  Sex: Male
  Weight: 96.6162 kg

DRUGS (10)
  1. BACTRIM [Suspect]
     Indication: URINARY TRACT INFECTION
     Dosage: PO
     Route: 048
  2. BACLOFEN [Concomitant]
  3. MOTRIN [Concomitant]
  4. DARVOCET-N 100 [Concomitant]
  5. CLONAZEPAM [Concomitant]
  6. WELLBUTRIN SR [Concomitant]
  7. PERCOCET [Concomitant]
  8. FIBER SUPPLEMENT [Concomitant]
  9. M.V.I. [Concomitant]
  10. GLUCOSAMINE [Concomitant]

REACTIONS (9)
  - ARTHRALGIA [None]
  - ASTHENIA [None]
  - CHILLS [None]
  - DEHYDRATION [None]
  - HEPATITIS TOXIC [None]
  - INFECTION [None]
  - MYALGIA [None]
  - PYREXIA [None]
  - UNEVALUABLE EVENT [None]
